FAERS Safety Report 5662118-5 (Version None)
Quarter: 2008Q1

REPORT INFORMATION
  Report Type: 
  Country: None (occurrence: None)
  Receive Date: 20080312
  Receipt Date: 20080304
  Transmission Date: 20080703
  Serious: Yes (Other)
  Sender: FDA-Public Use
  Company Number: US-BOEHRINGER INGELHEIM GMBH, GERMANY-2008-BP-03388RO

PATIENT
  Sex: Female

DRUGS (18)
  1. PREDNISONE TAB [Suspect]
     Route: 048
     Dates: start: 20020819
  2. BELATACEPT [Suspect]
     Indication: RENAL TRANSPLANT
     Route: 042
     Dates: start: 20020819
  3. CELLCEPT [Suspect]
     Route: 048
     Dates: start: 20020819
  4. MACROBID [Concomitant]
     Dates: start: 20040922
  5. BACTRIM [Concomitant]
     Dates: start: 20041022
  6. MULTI-VITAMIN [Concomitant]
     Dates: start: 20020820
  7. CALCIUM [Concomitant]
     Dates: start: 20030529
  8. VITAMIN D [Concomitant]
     Dates: start: 20030529
  9. MECLIZINE [Concomitant]
     Dates: start: 20040206
  10. TENORMIN [Concomitant]
     Dates: start: 20050203
  11. FLUCONAZOLE [Concomitant]
     Dates: start: 20051215
  12. DYNACIRC [Concomitant]
     Dates: start: 20050301
  13. TEMAZEPAM [Concomitant]
     Dates: start: 20060315
  14. SERTRALINE [Concomitant]
     Dates: start: 20060601
  15. NYSTATIN [Concomitant]
     Dates: start: 20060913
  16. FLU VACCINE [Concomitant]
     Dates: start: 20061010
  17. PRAVACHOL [Concomitant]
     Dates: start: 20070111
  18. METOCLOPRAMIDE [Concomitant]
     Dates: start: 20070111

REACTIONS (1)
  - BASAL CELL CARCINOMA [None]
